FAERS Safety Report 7271117-1 (Version None)
Quarter: 2011Q1

REPORT INFORMATION
  Report Type: 
  Country: None (occurrence: None)
  Receive Date: 20110202
  Receipt Date: 20110121
  Transmission Date: 20110831
  Serious: Yes (Death)
  Sender: FDA-Public Use
  Company Number: JP-CELGENEUS-087-21880-10120745

PATIENT
  Sex: Female

DRUGS (6)
  1. REVLIMID [Suspect]
     Route: 048
     Dates: start: 20100813, end: 20100902
  2. LENADEX [Suspect]
     Indication: MULTIPLE MYELOMA
     Route: 048
     Dates: start: 20100813, end: 20100901
  3. REVLIMID [Suspect]
     Route: 048
     Dates: start: 20101008, end: 20101020
  4. LENADEX [Suspect]
     Route: 048
     Dates: start: 20100910, end: 20100929
  5. REVLIMID [Suspect]
     Route: 048
     Dates: start: 20100910, end: 20100930
  6. LENADEX [Suspect]
     Route: 048
     Dates: start: 20101008, end: 20101019

REACTIONS (1)
  - MENINGITIS CRYPTOCOCCAL [None]
